FAERS Safety Report 4767014-3 (Version None)
Quarter: 2005Q3

REPORT INFORMATION
  Report Type: 
  Country: None (occurrence: None)
  Receive Date: 20050908
  Receipt Date: 20050809
  Transmission Date: 20060218
  Serious: Yes (Hospitalization)
  Sender: FDA-Public Use
  Company Number: 6016253

PATIENT
  Age: 86 Year
  Sex: Male

DRUGS (3)
  1. ARATAC (200MG, TABLET) (AMIODARONE HYDROCHLORIDE) [Suspect]
     Indication: ARRHYTHMIA
     Dosage: 200 MG (200 MG,1 D), ORAL
     Route: 048
  2. FUROSEMIDE [Concomitant]
  3. FLORINEF [Concomitant]

REACTIONS (9)
  - ASCITES [None]
  - DISCOMFORT [None]
  - DYSPNOEA [None]
  - HEPATIC CIRRHOSIS [None]
  - LEFT VENTRICULAR FAILURE [None]
  - MALAISE [None]
  - MITRAL VALVE INCOMPETENCE [None]
  - MULTIPLE MYELOMA [None]
  - WEIGHT INCREASED [None]
